FAERS Safety Report 15877705 (Version 2)
Quarter: 2019Q1

REPORT INFORMATION
  Report Type: Spontaneous
  Country: BR (occurrence: BR)
  Receive Date: 20190128
  Receipt Date: 20190129
  Transmission Date: 20190417
  Serious: Yes (Hospitalization)
  Sender: FDA-Public Use
  Company Number: BR-BAXTER-2019BAX001415

PATIENT
  Age: 52 Year
  Sex: Female
  Weight: 72 kg

DRUGS (13)
  1. TOPIRAMATO [Concomitant]
     Active Substance: TOPIRAMATE
     Indication: PRODUCT USED FOR UNKNOWN INDICATION
     Route: 048
  2. GENUXAL [Suspect]
     Active Substance: CYCLOPHOSPHAMIDE
     Dosage: THE PATIENT ALSO RECEIVED TREATMENT WITH GENUXAL WITH STRENGTH 200 MG
     Route: 042
  3. DEXTROSE 5% SOLUTION [Suspect]
     Active Substance: DEXTROSE MONOHYDRATE
     Indication: MEDICATION DILUTION
     Route: 042
     Dates: start: 20181129
  4. GENUXAL [Suspect]
     Active Substance: CYCLOPHOSPHAMIDE
     Indication: INVASIVE BREAST CARCINOMA
     Route: 042
     Dates: start: 20181129
  5. PANTOPRAZOLE [Concomitant]
     Active Substance: PANTOPRAZOLE
     Indication: PRODUCT USED FOR UNKNOWN INDICATION
     Route: 048
  6. PARACETAMOL/CODEINE [Concomitant]
     Active Substance: ACETAMINOPHEN\CODEINE PHOSPHATE
     Indication: PRODUCT USED FOR UNKNOWN INDICATION
     Route: 065
  7. PALONOSETRON. [Concomitant]
     Active Substance: PALONOSETRON HYDROCHLORIDE
     Indication: PREMEDICATION
     Route: 042
  8. ZOLPIDEM [Concomitant]
     Active Substance: ZOLPIDEM\ZOLPIDEM TARTRATE
     Indication: PRODUCT USED FOR UNKNOWN INDICATION
     Route: 048
  9. FOSAPREPITANT [Concomitant]
     Active Substance: FOSAPREPITANT
     Indication: PREMEDICATION
     Route: 042
  10. DEXAMETHASONE. [Suspect]
     Active Substance: DEXAMETHASONE
     Indication: PREMEDICATION
     Route: 042
  11. RIVAROXABAN [Concomitant]
     Active Substance: RIVAROXABAN
     Indication: PRODUCT USED FOR UNKNOWN INDICATION
     Route: 065
  12. FAULDOXO [Suspect]
     Active Substance: DOXORUBICIN HYDROCHLORIDE
     Indication: INVASIVE BREAST CARCINOMA
     Route: 042
     Dates: start: 20181129
  13. CLORETO DE S?DIO - BAXTER [Suspect]
     Active Substance: SODIUM CHLORIDE
     Indication: MEDICATION DILUTION
     Route: 065
     Dates: start: 20181129

REACTIONS (4)
  - Pain [Recovered/Resolved]
  - Thrombophlebitis [Recovered/Resolved]
  - Oedema [Recovered/Resolved]
  - Feeling hot [Recovered/Resolved]

NARRATIVE: CASE EVENT DATE: 20181204
